FAERS Safety Report 15711115 (Version 2)
Quarter: 2018Q4

REPORT INFORMATION
  Report Type: Spontaneous
  Country: JP (occurrence: JP)
  Receive Date: 20181211
  Receipt Date: 20181214
  Transmission Date: 20190205
  Serious: Yes (Hospitalization)
  Sender: FDA-Public Use
  Company Number: JP-DSJP-DSJ-2018-150925AA

PATIENT

DRUGS (3)
  1. LIXIANA TABLETS [Suspect]
     Active Substance: EDOXABAN TOSYLATE
     Dosage: 60 MG, QD
     Route: 048
  2. LIXIANA TABLETS [Suspect]
     Active Substance: EDOXABAN TOSYLATE
     Indication: PULMONARY EMBOLISM
     Dosage: 60 MG, QD
     Route: 048
  3. LIXIANA TABLETS [Suspect]
     Active Substance: EDOXABAN TOSYLATE
     Dosage: 60 MG, QD
     Route: 048

REACTIONS (4)
  - Benign prostatic hyperplasia [Recovering/Resolving]
  - Anaemia [Recovering/Resolving]
  - Haematuria [Recovering/Resolving]
  - Haemorrhage [Recovering/Resolving]
